FAERS Safety Report 9138109 (Version 1)
Quarter: 2013Q1

REPORT INFORMATION
  Report Type: Spontaneous
  Country: US (occurrence: US)
  Receive Date: 20130304
  Receipt Date: 20130304
  Transmission Date: 20140127
  Serious: No
  Sender: FDA-Public Use
  Company Number: US-ABBOTT-12P-163-0943247-00

PATIENT
  Sex: Male

DRUGS (7)
  1. ANDROGEL 1% [Suspect]
     Indication: BLOOD TESTOSTERONE DECREASED
     Dosage: 4 PUMPS
     Dates: start: 20120516
  2. CITALOPRAM [Concomitant]
     Indication: DEPRESSION
  3. SIMVASTATIN [Concomitant]
     Indication: BLOOD CHOLESTEROL INCREASED
  4. PANTOPRAZOLE [Concomitant]
     Indication: GASTROOESOPHAGEAL REFLUX DISEASE
  5. VERAMYST [Concomitant]
     Indication: SEASONAL ALLERGY
     Dosage: NASAL INHALER AS REQUIRED
  6. ZYRTEC OTC [Concomitant]
     Indication: SEASONAL ALLERGY
  7. MULTIVITAMIN [Concomitant]
     Indication: VITAMIN SUPPLEMENTATION

REACTIONS (1)
  - Weight increased [Not Recovered/Not Resolved]
